FAERS Safety Report 21573786 (Version 3)
Quarter: 2022Q4

REPORT INFORMATION
  Report Type: Report from Study
  Country: US (occurrence: US)
  Receive Date: 20221109
  Receipt Date: 20221122
  Transmission Date: 20230112
  Serious: Yes (Death, Other)
  Sender: FDA-Public Use
  Company Number: US-ABBVIE-22K-163-4396324-00

PATIENT
  Sex: Male
  Weight: 54.884 kg

DRUGS (5)
  1. HUMIRA [Suspect]
     Active Substance: ADALIMUMAB
     Indication: Psoriasis
     Dosage: FORM STRENGTH: 40 MILLIGRAM?CITRATE FREE
     Route: 058
     Dates: start: 2018
  2. HUMIRA [Suspect]
     Active Substance: ADALIMUMAB
     Indication: Psoriasis
     Dosage: CF FORM STRENGTH - 40 MILLIGRAM
     Route: 058
  3. MODERNA COVID-19 VACCINE [Concomitant]
     Active Substance: ELASOMERAN
     Indication: COVID-19 immunisation
     Dosage: FIRST DOSE
     Dates: start: 20210212, end: 20210212
  4. MODERNA COVID-19 VACCINE [Concomitant]
     Active Substance: ELASOMERAN
     Indication: COVID-19 immunisation
     Dosage: SECOND DOSE
     Dates: start: 20210312, end: 20210312
  5. MODERNA COVID-19 VACCINE [Concomitant]
     Active Substance: ELASOMERAN
     Indication: COVID-19 immunisation
     Dosage: BOOSTER DOSE
     Dates: start: 20211023, end: 20211023

REACTIONS (15)
  - Chronic kidney disease [Fatal]
  - Weight decreased [Fatal]
  - Leg amputation [Fatal]
  - Sleep disorder [Unknown]
  - Cerebrovascular accident [Fatal]
  - Decreased appetite [Unknown]
  - Cardiovascular disorder [Unknown]
  - Blood pressure decreased [Fatal]
  - Ageusia [Fatal]
  - Confusional state [Fatal]
  - Loss of consciousness [Unknown]
  - Seizure [Fatal]
  - Poor peripheral circulation [Fatal]
  - Asthenia [Fatal]
  - Localised infection [Fatal]

NARRATIVE: CASE EVENT DATE: 20160101
